FAERS Safety Report 4467020-2 (Version None)
Quarter: 2004Q3

REPORT INFORMATION
  Report Type: 
  Country: None (occurrence: None)
  Receive Date: 20040929
  Receipt Date: 20040929
  Transmission Date: 20050211
  Serious: Yes (Hospitalization)
  Sender: FDA-Public Use
  Company Number: None

PATIENT
  Sex: Male

DRUGS (13)
  1. DILANTIN [Suspect]
     Indication: CONVULSION
     Dosage: 400 MG HS   ORAL
     Route: 048
     Dates: start: 20031115, end: 20040217
  2. AMIODARONE HCL [Concomitant]
  3. COMBIVENT [Concomitant]
  4. DOCUSATE [Concomitant]
  5. FERROUS SULFATE TAB [Concomitant]
  6. FLUDROCORTISONE ACETATE [Concomitant]
  7. HYDROCHLOROTHIAZIDE [Concomitant]
  8. LEVOTHYROXINE SODIUM [Concomitant]
  9. METOPROLOL [Concomitant]
  10. MULTI-VITAMIN [Concomitant]
  11. OMEPRAZOLE [Concomitant]
  12. RANITIDINE [Concomitant]
  13. SIMVASTATIN [Concomitant]

REACTIONS (2)
  - ATAXIA [None]
  - DIZZINESS [None]
